FAERS Safety Report 5102985-7 (Version None)
Quarter: 2006Q3

REPORT INFORMATION
  Report Type: 
  Country: None (occurrence: None)
  Receive Date: 20060908
  Receipt Date: 20060824
  Transmission Date: 20061208
  Serious: Yes (Hospitalization, Other)
  Sender: FDA-Public Use
  Company Number: 2006AL002503

PATIENT
  Age: 65 Year
  Sex: Female

DRUGS (5)
  1. DICLOFENAC SODIUM DELAYED-RELEASE TABLET, 50 MG (PUREPAC) (DICLOFENAC [Suspect]
     Indication: RHEUMATOID ARTHRITIS
     Dosage: 50 M; QD; PO
     Route: 048
  2. HYDROCORTISONE [Concomitant]
  3. RANITIDINE [Concomitant]
  4. METHOTREXATE [Concomitant]
  5. FOLIC ACID [Concomitant]

REACTIONS (4)
  - ABDOMINAL SEPSIS [None]
  - ARTHRITIS INFECTIVE [None]
  - PHARMACEUTICAL PRODUCT COMPLAINT [None]
  - POST PROCEDURAL COMPLICATION [None]
